FAERS Safety Report 24364288 (Version 1)
Quarter: 2024Q3

REPORT INFORMATION
  Report Type: Spontaneous
  Country: US (occurrence: US)
  Receive Date: 20240925
  Receipt Date: 20240925
  Transmission Date: 20241016
  Serious: No
  Sender: BIOGEN
  Company Number: US-BIOGEN-2024BI01283003

PATIENT
  Age: 20 Year
  Sex: Female

DRUGS (3)
  1. ZURZUVAE [Suspect]
     Active Substance: ZURANOLONE
     Indication: Perinatal depression
     Route: 050
     Dates: start: 20240912, end: 20240913
  2. VITAMINS [Concomitant]
     Active Substance: VITAMINS
     Indication: Product used for unknown indication
     Route: 050
  3. Blisovi Fe [Concomitant]
     Indication: Product used for unknown indication
     Route: 050

REACTIONS (3)
  - Balance disorder [Unknown]
  - Feeling drunk [Unknown]
  - Somnolence [Unknown]

NARRATIVE: CASE EVENT DATE: 20240914
